FAERS Safety Report 7711899-5 (Version None)
Quarter: 2011Q3

REPORT INFORMATION
  Report Type: 
  Country: None (occurrence: None)
  Receive Date: 20110826
  Receipt Date: 20110823
  Transmission Date: 20111222
  Serious: Yes (Death, Other)
  Sender: FDA-Public Use
  Company Number: DE-BRISTOL-MYERS SQUIBB COMPANY-15854235

PATIENT
  Age: 87 Year
  Sex: Male

DRUGS (14)
  1. HYDROCHLOROTHIAZIDE [Concomitant]
  2. XIPAMIDE [Concomitant]
  3. GODAMED [Concomitant]
     Dosage: 1DF:100 UNITS NOS
  4. ONGLYZA [Suspect]
     Indication: TYPE 2 DIABETES MELLITUS
     Route: 048
     Dates: start: 20100624, end: 20110301
  5. LEVODOPA [Concomitant]
     Dosage: 1DF:100/25MG
  6. RANEXA [Concomitant]
  7. DIOVAN [Concomitant]
  8. PANTOPRAZOLE [Concomitant]
  9. CORANGIN [Concomitant]
  10. GLYBURIDE [Concomitant]
  11. METFORMIN HCL [Suspect]
     Indication: TYPE 2 DIABETES MELLITUS
  12. TORSEMIDE [Concomitant]
  13. BISOPROLOL FUMARATE [Concomitant]
  14. MOLSIHEXAL [Concomitant]

REACTIONS (4)
  - DUODENAL ULCER [None]
  - BARRETT'S OESOPHAGUS [None]
  - GASTRIC CANCER [None]
  - GASTROOESOPHAGITIS [None]
